FAERS Safety Report 6199657-7 (Version None)
Quarter: 2009Q2

REPORT INFORMATION
  Report Type: 
  Country: None (occurrence: None)
  Receive Date: 20090522
  Receipt Date: 20090511
  Transmission Date: 20091009
  Serious: Yes (Disabling)
  Sender: FDA-Public Use
  Company Number: GB-AVENTIS-200517755GDDC

PATIENT
  Age: 18 Year
  Sex: Female

DRUGS (3)
  1. FLAGYL [Suspect]
     Indication: PELVIC INFLAMMATORY DISEASE
     Dosage: DOSE: UNK
  2. OFLOXACIN [Suspect]
     Indication: PELVIC INFLAMMATORY DISEASE
  3. AMOXICILLIN AND CLAVULANATE POTASSIUM [Concomitant]
     Indication: URINARY TRACT INFECTION
     Dosage: DOSE: UNK

REACTIONS (16)
  - ANXIETY [None]
  - APHASIA [None]
  - BLOOD URINE PRESENT [None]
  - CONFUSIONAL STATE [None]
  - DEPRESSED MOOD [None]
  - DRUG INTERACTION [None]
  - FEAR [None]
  - HYPERREFLEXIA [None]
  - IMMOBILE [None]
  - NEGATIVE THOUGHTS [None]
  - PARANOIA [None]
  - PSYCHOTIC DISORDER [None]
  - PYREXIA [None]
  - REFLEXES ABNORMAL [None]
  - URINE ANALYSIS ABNORMAL [None]
  - WHITE BLOOD CELL COUNT DECREASED [None]
